FAERS Safety Report 6636097-8 (Version None)
Quarter: 2010Q1

REPORT INFORMATION
  Report Type: 
  Country: None (occurrence: None)
  Receive Date: 20100316
  Receipt Date: 20100310
  Transmission Date: 20100710
  Serious: Yes (Hospitalization, Disabling)
  Sender: FDA-Public Use
  Company Number: US-BAYER-200924709NA

PATIENT
  Age: 78 Year
  Sex: Male
  Weight: 76 kg

DRUGS (25)
  1. SORAFENIB [Suspect]
     Indication: COLORECTAL CANCER METASTATIC
     Dosage: TOTAL DAILY DOSE: 800 MG  UNIT DOSE: 200 MG
     Route: 048
     Dates: start: 20090526, end: 20090609
  2. SORAFENIB [Suspect]
     Dosage: TOTAL DAILY DOSE: 400 MG  UNIT DOSE: 200 MG
     Route: 048
     Dates: start: 20090609, end: 20090615
  3. OXALIPLATIN [Suspect]
     Indication: COLORECTAL CANCER METASTATIC
     Dosage: AS USED: 85 MG/M2
     Route: 042
     Dates: start: 20090707, end: 20090707
  4. OXALIPLATIN [Suspect]
     Dosage: AS USED: 85 MG/M2
     Route: 042
     Dates: start: 20090609, end: 20090609
  5. OXALIPLATIN [Suspect]
     Dosage: AS USED: 85 MG/M2
     Route: 042
     Dates: start: 20090526, end: 20090526
  6. LEUCOVORIN CALCIUM [Suspect]
     Indication: COLORECTAL CANCER METASTATIC
     Dosage: AS USED: 400 MG/M2
     Route: 042
     Dates: start: 20090707, end: 20090707
  7. LEUCOVORIN CALCIUM [Suspect]
     Dosage: AS USED: 400 MG/M2
     Route: 042
     Dates: start: 20090526, end: 20090526
  8. LEUCOVORIN CALCIUM [Suspect]
     Dosage: AS USED: 400 MG/M2
     Route: 042
     Dates: start: 20090609, end: 20090609
  9. FLUOROURACIL [Suspect]
     Indication: COLORECTAL CANCER METASTATIC
     Dosage: AS USED: 2400 MG/M2
     Route: 042
     Dates: start: 20090609, end: 20090611
  10. FLUOROURACIL [Suspect]
     Dosage: AS USED: 2400 MG/M2
     Route: 042
     Dates: start: 20090707, end: 20090709
  11. FLUOROURACIL [Suspect]
     Dosage: AS USED: 400 MG/M2
     Route: 040
     Dates: start: 20090707, end: 20090707
  12. FLUOROURACIL [Suspect]
     Dosage: AS USED: 400 MG/M2
     Route: 040
     Dates: start: 20090609, end: 20090609
  13. FLUOROURACIL [Suspect]
     Dosage: AS USED: 400 MG/M2
     Route: 040
     Dates: start: 20090526, end: 20090526
  14. FLUOROURACIL [Suspect]
     Dosage: AS USED: 2400 MG/M2
     Route: 042
     Dates: start: 20090526, end: 20090528
  15. ASPIRIN [Concomitant]
     Indication: HYPERTENSION
     Dates: start: 20090519
  16. ATENOLOL [Concomitant]
     Indication: HYPERTENSION
     Dates: start: 20080519
  17. TAMSULOSIN HCL [Concomitant]
     Indication: BENIGN PROSTATIC HYPERPLASIA
     Dates: start: 20080510
  18. LISINOPRIL [Concomitant]
     Indication: HYPERTENSION
     Dates: start: 20080519
  19. AMLODIPINE [Concomitant]
     Indication: HYPERTENSION
     Dates: start: 20080519
  20. METFORMIN HCL [Concomitant]
     Indication: TYPE 2 DIABETES MELLITUS
     Dates: start: 20080519
  21. SIMVASTATIN [Concomitant]
     Indication: HYPERLIPIDAEMIA
     Dates: start: 20090519
  22. VITAMIN C [Concomitant]
     Indication: VITAMIN SUPPLEMENTATION
     Dates: start: 20090519
  23. TYLENOL-500 [Concomitant]
     Indication: PAIN
     Dates: start: 20090526
  24. DEXAMETHASONE [Concomitant]
     Dates: start: 20090609
  25. ONDANSETRON [Concomitant]
     Dates: start: 20090609

REACTIONS (3)
  - CELLULITIS [None]
  - DIABETIC FOOT INFECTION [None]
  - OSTEOMYELITIS [None]
